FAERS Safety Report 10617316 (Version 1)
Quarter: 2014Q4

REPORT INFORMATION
  Report Type: Spontaneous
  Country: PL (occurrence: PL)
  Receive Date: 20141201
  Receipt Date: 20141201
  Transmission Date: 20150529
  Serious: Yes (Death, Other)
  Sender: FDA-Public Use
  Company Number: PHHY2014PL154638

PATIENT
  Age: 80 Year
  Sex: Male
  Weight: 94 kg

DRUGS (1)
  1. TASIGNA [Suspect]
     Active Substance: NILOTINIB
     Indication: PRODUCT USED FOR UNKNOWN INDICATION
     Route: 065

REACTIONS (2)
  - Multi-organ failure [Fatal]
  - Cardiac failure [Unknown]

NARRATIVE: CASE EVENT DATE: 20141026
